FAERS Safety Report 4762248-6 (Version None)
Quarter: 2005Q3

REPORT INFORMATION
  Report Type: 
  Country: None (occurrence: None)
  Receive Date: 20050907
  Receipt Date: 20040618
  Transmission Date: 20060218
  Serious: Yes (Hospitalization)
  Sender: FDA-Public Use
  Company Number: 2004UW14008

PATIENT
  Age: 23 Year
  Sex: Male
  Weight: 55 kg

DRUGS (7)
  1. BUDECORT [Suspect]
     Indication: RHINITIS
     Route: 045
     Dates: start: 20040614, end: 20040616
  2. BUDECORT [Suspect]
     Route: 045
     Dates: start: 19990101, end: 19990101
  3. BUDECORT [Suspect]
     Route: 045
     Dates: start: 20010101, end: 20010101
  4. BUDECORT [Suspect]
     Route: 045
     Dates: start: 20020101, end: 20020101
  5. BUDECORT [Suspect]
     Route: 045
     Dates: start: 20030101, end: 20030101
  6. BUDECORT [Suspect]
     Route: 045
     Dates: start: 20041001, end: 20041015
  7. BUDECORT [Suspect]
     Route: 045

REACTIONS (15)
  - ABDOMINAL PAIN UPPER [None]
  - DIARRHOEA [None]
  - DYSPHONIA [None]
  - EPISTAXIS [None]
  - GASTROINTESTINAL HAEMORRHAGE [None]
  - GASTROINTESTINAL INFLAMMATION [None]
  - HEADACHE [None]
  - INFLAMMATION [None]
  - NASAL DISCOMFORT [None]
  - NASAL ULCER [None]
  - NAUSEA [None]
  - PEPTIC ULCER [None]
  - THROAT IRRITATION [None]
  - ULCER [None]
  - VOMITING [None]
